FAERS Safety Report 4484891-4 (Version None)
Quarter: 2004Q3

REPORT INFORMATION
  Report Type: 
  Country: None (occurrence: None)
  Receive Date: 20040921
  Receipt Date: 20030905
  Transmission Date: 20050211
  Serious: Yes (Hospitalization)
  Sender: FDA-Public Use
  Company Number: 163-20785-03090187(0)

PATIENT
  Age: 75 Year
  Sex: Female

DRUGS (4)
  1. THALOMID [Suspect]
     Indication: MULTIPLE MYELOMA
     Dosage: 200 MG, DAILY, ORAL
     Route: 048
     Dates: start: 20021201, end: 20030901
  2. DIAZIDE (GLICLAZIDE) [Concomitant]
  3. TRICOR [Concomitant]
  4. ANTIHYPERTENSIVE MEDICATION (ANTIHYPERTENSIVES) [Concomitant]

REACTIONS (1)
  - RENAL FAILURE ACUTE [None]
